FAERS Safety Report 4398899-0 (Version None)
Quarter: 2004Q3

REPORT INFORMATION
  Report Type: 
  Country: None (occurrence: None)
  Receive Date: 20040712
  Receipt Date: 20040622
  Transmission Date: 20050211
  Serious: Yes (Death, Other)
  Sender: FDA-Public Use
  Company Number: US_0406103786

PATIENT
  Sex: Male

DRUGS (3)
  1. GEMCITABINE HYDROCHLORIDE-IV (GEMCITABINE) [Suspect]
     Indication: NON-SMALL CELL LUNG CANCER STAGE III
     Dosage: 1000 MG/M2 OTHER
  2. NAVELBINE [Concomitant]
  3. RADIOTHERAPY [Concomitant]

REACTIONS (1)
  - ILEUS PARALYTIC [None]
